FAERS Safety Report 10625216 (Version 8)
Quarter: 2020Q1

REPORT INFORMATION
  Report Type: Report from Study
  Country: FR (occurrence: FR)
  Receive Date: 20141204
  Receipt Date: 20200210
  Transmission Date: 20200409
  Serious: Yes (Other)
  Sender: FDA-Public Use
  Company Number: PHHY2014FR156514

PATIENT
  Age: 57 Year
  Sex: Female
  Weight: 67 kg

DRUGS (5)
  1. SEROPLEX [Concomitant]
     Active Substance: ESCITALOPRAM OXALATE
     Indication: DEPRESSION
     Dosage: 10 MG, QD
     Route: 048
     Dates: start: 20140127
  2. ALDACTONE [Concomitant]
     Active Substance: SPIRONOLACTONE
     Indication: HYPERTENSION
     Dosage: 50 MG, QD
     Route: 048
     Dates: start: 20131209
  3. GELTIM [Concomitant]
     Active Substance: TIMOLOL MALEATE
     Indication: OCULAR HYPERTENSION
     Route: 065
     Dates: start: 20140721
  4. SIGNIFOR [Suspect]
     Active Substance: PASIREOTIDE DIASPARTATE
     Indication: PITUITARY-DEPENDENT CUSHING^S SYNDROME
     Dosage: 1.2 MG, QD
     Route: 058
     Dates: start: 20140725, end: 20140909
  5. SIGNIFOR [Suspect]
     Active Substance: PASIREOTIDE DIASPARTATE
     Dosage: 1.8 MG, QD
     Route: 058
     Dates: start: 20140910, end: 20141103

REACTIONS (10)
  - Hyperglycaemia [Recovered/Resolved]
  - Hyperglycaemia [Recovered/Resolved]
  - Alanine aminotransferase increased [Recovered/Resolved]
  - Diabetes mellitus [Recovered/Resolved]
  - Hypercholesterolaemia [Recovered/Resolved]
  - Drug ineffective [Recovered/Resolved]
  - Hyperglycaemia [Recovered/Resolved]
  - Therapy non-responder [Recovered/Resolved]
  - Cortisol free urine increased [Recovered/Resolved]
  - Hyperglycaemia [Recovered/Resolved]

NARRATIVE: CASE EVENT DATE: 20140727
